FAERS Safety Report 6408135-9 (Version None)
Quarter: 2009Q4

REPORT INFORMATION
  Report Type: 
  Country: None (occurrence: None)
  Receive Date: 20091021
  Receipt Date: 20091013
  Transmission Date: 20100525
  Serious: Yes (Life-Threatening, Other)
  Sender: FDA-Public Use
  Company Number: AR-BAYER-200935641GPV

PATIENT
  Age: 71 Year
  Sex: Female
  Weight: 65 kg

DRUGS (5)
  1. CIPROFLOXACIN HYDROCHLORIDE [Suspect]
     Indication: PNEUMONIA
     Route: 065
  2. CLARITHROMYCIN [Interacting]
     Indication: PNEUMONIA
     Route: 065
  3. AMIODARONE [Concomitant]
     Indication: ATRIAL FIBRILLATION
     Route: 042
  4. AMIODARONE [Concomitant]
     Route: 042
  5. AMIODARONE [Concomitant]
     Route: 040

REACTIONS (5)
  - ATRIAL FIBRILLATION [None]
  - ELECTROCARDIOGRAM QT PROLONGED [None]
  - NODAL RHYTHM [None]
  - TACHYCARDIA [None]
  - VENTRICULAR TACHYCARDIA [None]
